FAERS Safety Report 18841653 (Version 2)
Quarter: 2021Q1

REPORT INFORMATION
  Report Type: Spontaneous
  Country: US (occurrence: US)
  Receive Date: 20210203
  Receipt Date: 20210215
  Transmission Date: 20210419
  Serious: No
  Sender: FDA-Public Use
  Company Number: US-PFIZER INC-2021070551

PATIENT
  Age: 60 Year
  Sex: Female
  Weight: 122.02 kg

DRUGS (1)
  1. CLINDAMYCIN PHOSPHATE. [Suspect]
     Active Substance: CLINDAMYCIN PHOSPHATE
     Indication: HYPERSENSITIVITY VASCULITIS
     Dosage: UNK, 1X/DAY (1% APPLY EXTERNALLY TO FACE EVERY MORNING)
     Route: 061

REACTIONS (8)
  - Pain in extremity [Unknown]
  - Swelling face [Not Recovered/Not Resolved]
  - Paraesthesia [Unknown]
  - Off label use [Unknown]
  - Burning sensation [Not Recovered/Not Resolved]
  - Erythema [Unknown]
  - Hypoaesthesia [Not Recovered/Not Resolved]
  - Feeling abnormal [Unknown]

NARRATIVE: CASE EVENT DATE: 202101
